FAERS Safety Report 17226442 (Version 5)
Quarter: 2020Q1

REPORT INFORMATION
  Report Type: Spontaneous
  Country: US (occurrence: US)
  Receive Date: 20200102
  Receipt Date: 20200213
  Transmission Date: 20200409
  Serious: Yes (Hospitalization)
  Sender: FDA-Public Use
  Company Number: US-PFIZER INC-2019562337

PATIENT
  Age: 81 Year
  Sex: Female
  Weight: 73.94 kg

DRUGS (6)
  1. METOPROLOL. [Concomitant]
     Active Substance: METOPROLOL
     Dosage: 50 MG, UNK
  2. IBRANCE [Suspect]
     Active Substance: PALBOCICLIB
     Dosage: 100 MG, ONCE A DAY
  3. FERROUS [IRON] [Suspect]
     Active Substance: IRON
     Dosage: 325 MG, UNK
  4. DULOXETINE. [Concomitant]
     Active Substance: DULOXETINE
     Dosage: UNK
  5. IBRANCE [Suspect]
     Active Substance: PALBOCICLIB
     Indication: BREAST CANCER METASTATIC
     Dosage: 125 MG, UNK
  6. FUROSEMIDE. [Concomitant]
     Active Substance: FUROSEMIDE
     Dosage: 40 MG, UNK

REACTIONS (6)
  - Investigation abnormal [Unknown]
  - Asthenia [Unknown]
  - Anaemia [Unknown]
  - Iron deficiency [Recovering/Resolving]
  - Fatigue [Unknown]
  - Haemoglobin decreased [Recovering/Resolving]
